FAERS Safety Report 15088417 (Version 1)
Quarter: 2018Q2

REPORT INFORMATION
  Report Type: Other
  Country: DE (occurrence: DE)
  Receive Date: 20180629
  Receipt Date: 20180629
  Transmission Date: 20180711
  Serious: Yes (Hospitalization)
  Sender: FDA-Public Use
  Company Number: DE-LUPIN PHARMACEUTICALS INC.-2018-00570

PATIENT
  Age: 59 Year
  Sex: Male
  Weight: 87 kg

DRUGS (4)
  1. CHOLESTAGEL [Suspect]
     Active Substance: COLESEVELAM HYDROCHLORIDE
     Indication: TYPE IIA HYPERLIPIDAEMIA
     Dosage: 1.2 G, UNK
     Route: 048
     Dates: start: 20170613, end: 20170730
  2. ATORVASTATIN [Suspect]
     Active Substance: ATORVASTATIN
     Indication: TYPE IIA HYPERLIPIDAEMIA
     Dosage: 20 MG
     Route: 048
     Dates: start: 20170113, end: 20170228
  3. SIMVASTATIN. [Suspect]
     Active Substance: SIMVASTATIN
     Indication: TYPE IIA HYPERLIPIDAEMIA
     Dosage: 40 MG, UNK
     Route: 048
     Dates: start: 20160908, end: 20161017
  4. BEZAFIBRATE [Suspect]
     Active Substance: BEZAFIBRATE
     Indication: TYPE IIA HYPERLIPIDAEMIA
     Dosage: 400 MG, UNK
     Route: 048
     Dates: start: 20170812, end: 20171018

REACTIONS (2)
  - Diarrhoea [Recovering/Resolving]
  - Myopathy [Recovered/Resolved]

NARRATIVE: CASE EVENT DATE: 20160915
